FAERS Safety Report 19899916 (Version 1)
Quarter: 2021Q3

REPORT INFORMATION
  Report Type: Spontaneous
  Country: FR (occurrence: FR)
  Receive Date: 20210929
  Receipt Date: 20210929
  Transmission Date: 20211014
  Serious: Yes (Hospitalization, Other)
  Sender: FDA-Public Use
  Company Number: FR-ABBVIE-21K-056-4095563-00

PATIENT
  Age: 70 Year
  Sex: Female

DRUGS (16)
  1. LEVODOPA BENSERAZIDE [Suspect]
     Active Substance: BENSERAZIDE\LEVODOPA
     Dosage: 5 DOSAGE FORMS DAILY; 50 MG/12.5 MG AT AT FIVE DOSAGE FORMS PER DAY
     Route: 048
     Dates: start: 2012
  2. LEVODOPA BENSERAZIDE [Suspect]
     Active Substance: BENSERAZIDE\LEVODOPA
     Dosage: 50 MG/12.5 MG DOSAGE OF TWO TABLETS SIX TIMES A DAY (EVERY THREE HOURS) AND
     Route: 065
     Dates: start: 20190325
  3. MODOPAR [Suspect]
     Active Substance: BENSERAZIDE HYDROCHLORIDE\LEVODOPA
     Indication: PRODUCT USED FOR UNKNOWN INDICATION
     Dosage: 6 DF DAILY; SIX DOSAGE FORMS PER DAY AND IT WAS DECIDED TO CAREFULLY INCREASE TO 62.5 MG E
     Route: 065
  4. OESTRODOSE [Concomitant]
     Active Substance: ESTRADIOL
     Indication: PRODUCT USED FOR UNKNOWN INDICATION
     Dosage: AT ONE DOSE EVERY EVENING
  5. LEPONEX [Concomitant]
     Active Substance: CLOZAPINE
     Indication: HALLUCINATION
     Dosage: DOSAGE OF A HALFTABLET PER DAY
  6. MELATONIN [Concomitant]
     Active Substance: MELATONIN
     Indication: PRODUCT USED FOR UNKNOWN INDICATION
     Dosage: 3 MG BEFORE BEDTIME
  7. XANAX [Concomitant]
     Active Substance: ALPRAZOLAM
     Indication: ANXIETY
  8. SINEMET LP [Suspect]
     Active Substance: CARBIDOPA\LEVODOPA
     Indication: PARKINSON^S DISEASE
     Route: 065
     Dates: start: 20180404
  9. FOSAMAX [Concomitant]
     Active Substance: ALENDRONATE SODIUM
     Indication: PRODUCT USED FOR UNKNOWN INDICATION
     Dosage: AT ONE TABLET PER WEEK
  10. MODOPAR [Suspect]
     Active Substance: BENSERAZIDE HYDROCHLORIDE\LEVODOPA
     Dosage: 62.5DOSAGE OF TWO TABLETS SIX TIMES A DAY (EVERY THREE HOURS) AND
     Route: 065
     Dates: start: 20190325
  11. LEVODOPA/CARBIDOPA [Suspect]
     Active Substance: CARBIDOPA\LEVODOPA
     Indication: PRODUCT USED FOR UNKNOWN INDICATION
     Route: 065
     Dates: start: 20180404
  12. MODOPAR [Suspect]
     Active Substance: BENSERAZIDE HYDROCHLORIDE\LEVODOPA
     Dosage: 5 DOSAGE FORMS DAILY; FIVE DOSAGE FORMS PER DAY
     Route: 048
     Dates: start: 2012
  13. SIFROL [Concomitant]
     Active Substance: PRAMIPEXOLE
     Indication: PRODUCT USED FOR UNKNOWN INDICATION
     Dosage: 1.05 MILLIGRAM DAILY; 1.05 MG AT ONE DOSAGE FORM IN THE MORNING
  14. LEVODOPA BENSERAZIDE [Suspect]
     Active Substance: BENSERAZIDE\LEVODOPA
     Indication: PARKINSON^S DISEASE
     Dosage: 6 DF DAILY; SIX DF PER DAY AND IT WAS DECIDED TO CAREFULLY INCREASE TO 62.5 MG E
     Route: 048
     Dates: start: 2012, end: 2012
  15. AZILECT [Concomitant]
     Active Substance: RASAGILINE MESYLATE
     Indication: PRODUCT USED FOR UNKNOWN INDICATION
     Dosage: 1 MILLIGRAM DAILY; 1 MG AT ONE DOSAGE FORM IN THE MORNING
  16. LEVODOPA/CARBIDOPA [Suspect]
     Active Substance: CARBIDOPA\LEVODOPA

REACTIONS (20)
  - Flushing [Unknown]
  - Choking [Not Recovered/Not Resolved]
  - Hyperventilation [Unknown]
  - Dyspnoea [Unknown]
  - Depression [Not Recovered/Not Resolved]
  - Microcytosis [Unknown]
  - Agitation [Not Recovered/Not Resolved]
  - Fear [Not Recovered/Not Resolved]
  - Camptocormia [Unknown]
  - Amimia [Unknown]
  - Dysphonia [Unknown]
  - Hallucination [Not Recovered/Not Resolved]
  - Cognitive disorder [Unknown]
  - Drug intolerance [Unknown]
  - Tremor [Not Recovered/Not Resolved]
  - Drug ineffective [Unknown]
  - Screaming [Not Recovered/Not Resolved]
  - Anxiety [Not Recovered/Not Resolved]
  - Feeling abnormal [Unknown]
  - Arthropathy [Unknown]

NARRATIVE: CASE EVENT DATE: 201810
